FAERS Safety Report 18639597 (Version 1)
Quarter: 2020Q4

REPORT INFORMATION
  Report Type: Spontaneous
  Country: US (occurrence: US)
  Receive Date: 20201220
  Receipt Date: 20201220
  Transmission Date: 20210114
  Serious: No
  Sender: FDA-Public Use
  Company Number: US-ASTRAZENECA-2020SF60498

PATIENT
  Age: 67 Year
  Sex: Female
  Weight: 64.4 kg

DRUGS (1)
  1. CALQUENCE [Suspect]
     Active Substance: ACALABRUTINIB
     Indication: LIGAMENT RUPTURE
     Route: 048
     Dates: start: 202004

REACTIONS (1)
  - Ill-defined disorder [Unknown]
